FAERS Safety Report 15172846 (Version 1)
Quarter: 2018Q3

REPORT INFORMATION
  Report Type: Spontaneous
  Country: ZA (occurrence: ZA)
  Receive Date: 20180720
  Receipt Date: 20180720
  Transmission Date: 20181010
  Serious: Yes (Death)
  Sender: FDA-Public Use
  Company Number: ZA-PFIZER INC-2018202412

PATIENT
  Age: 67 Year
  Sex: Male

DRUGS (4)
  1. PANTOCID /01263204/ [Suspect]
     Active Substance: PANTOPRAZOLE SODIUM
     Dosage: 40 MG, UNK
  2. ASPAVOR [Suspect]
     Active Substance: ATORVASTATIN
     Dosage: 40 MG, UNK
  3. CYMGEN [Suspect]
     Active Substance: DULOXETINE HYDROCHLORIDE
     Dosage: 60 MG, UNK
  4. ECOTRIN [Suspect]
     Active Substance: ASPIRIN
     Dosage: 81 MG, UNK

REACTIONS (1)
  - Death [Fatal]
